FAERS Safety Report 8799372 (Version 1)
Quarter: 2012Q4

REPORT INFORMATION
  Report Type: 
  Country: US (occurrence: US)
  Receive Date: 20120919
  Receipt Date: 20120919
  Transmission Date: 20130627
  Serious: Yes (Death)
  Sender: FDA-Public Use
  Company Number: US-ASTELLAS-2012US007900

PATIENT
  Sex: Female

DRUGS (1)
  1. PROGRAF [Suspect]
     Indication: LUNG TRANSPLANT
     Dosage: 2 mg morning, 1.5 mg afternoon
     Route: 048
     Dates: start: 20100723, end: 20120602

REACTIONS (2)
  - Off label use [Unknown]
  - Lymphoma [Fatal]
